FAERS Safety Report 14410649 (Version 2)
Quarter: 2018Q1

REPORT INFORMATION
  Report Type: Spontaneous
  Country: US (occurrence: US)
  Receive Date: 20180119
  Receipt Date: 20180216
  Transmission Date: 20180509
  Serious: No
  Sender: FDA-Public Use
  Company Number: US-ASTRAZENECA-2018SE06433

PATIENT
  Age: 71 Year
  Sex: Male
  Weight: 106.6 kg

DRUGS (4)
  1. LOW DOSE ASPIRIN [Concomitant]
     Active Substance: ASPIRIN
     Indication: MYOCARDIAL INFARCTION
  2. CRESTOR [Suspect]
     Active Substance: ROSUVASTATIN CALCIUM
     Indication: BLOOD CHOLESTEROL ABNORMAL
     Dosage: DAILY
     Route: 048
  3. SUDAFED [Concomitant]
     Active Substance: PSEUDOEPHEDRINE HYDROCHLORIDE
  4. PROPECIA [Concomitant]
     Active Substance: FINASTERIDE
     Indication: ALOPECIA

REACTIONS (7)
  - Cardiac disorder [Unknown]
  - Arteriosclerosis [Unknown]
  - Dry throat [Unknown]
  - Dysarthria [Unknown]
  - Low density lipoprotein increased [Unknown]
  - Coronary artery stenosis [Unknown]
  - Blood cholesterol increased [Unknown]

NARRATIVE: CASE EVENT DATE: 201712
